FAERS Safety Report 6780758-7 (Version None)
Quarter: 2010Q2

REPORT INFORMATION
  Report Type: 
  Country: None (occurrence: None)
  Receive Date: 20100621
  Receipt Date: 20100614
  Transmission Date: 20101027
  Serious: Yes (Other)
  Sender: FDA-Public Use
  Company Number: US-JNJFOC-20100604992

PATIENT
  Sex: Female
  Weight: 77.11 kg

DRUGS (13)
  1. DURAGESIC-100 [Suspect]
     Indication: INTERVERTEBRAL DISC PROTRUSION
     Route: 062
  2. DURAGESIC-100 [Suspect]
     Indication: INTERVERTEBRAL DISC DEGENERATION
     Route: 062
  3. DURAGESIC-100 [Suspect]
     Indication: CHRONIC FATIGUE SYNDROME
     Route: 062
  4. DURAGESIC-100 [Suspect]
     Route: 062
  5. DURAGESIC-100 [Suspect]
     Route: 062
  6. DURAGESIC-100 [Suspect]
     Route: 062
  7. AMBIEN [Concomitant]
     Indication: SLEEP DISORDER
     Route: 048
  8. SOMA [Concomitant]
     Indication: PAIN
     Route: 048
  9. ESTRADIOL [Concomitant]
     Indication: HYSTERECTOMY
     Route: 048
  10. PRILOSEC [Concomitant]
     Indication: GASTROOESOPHAGEAL REFLUX DISEASE
     Route: 048
  11. SYNTHROID [Concomitant]
     Indication: HYPOTHYROIDISM
     Route: 048
  12. PROZAC [Concomitant]
     Indication: CHRONIC FATIGUE SYNDROME
     Route: 065
  13. DIAZEPAM [Concomitant]
     Indication: SLEEP DISORDER
     Route: 048

REACTIONS (5)
  - DRUG INEFFECTIVE [None]
  - PAIN [None]
  - ROSACEA [None]
  - VITAMIN B COMPLEX DEFICIENCY [None]
  - VITAMIN D DECREASED [None]
